FAERS Safety Report 23280632 (Version 2)
Quarter: 2023Q4

REPORT INFORMATION
  Report Type: Spontaneous
  Country: JP (occurrence: JP)
  Receive Date: 20231211
  Receipt Date: 20231218
  Transmission Date: 20240110
  Serious: Yes (Hospitalization, Other)
  Sender: FDA-Public Use
  Company Number: JP-GLAXOSMITHKLINE-JP2023JPN169959

PATIENT

DRUGS (36)
  1. LAMICTAL [Suspect]
     Active Substance: LAMOTRIGINE
     Dosage: 200 MG, 1D
  2. DIAZEPAM [Suspect]
     Active Substance: DIAZEPAM
     Dosage: 10 MG, 1D
  3. CARVEDILOL [Suspect]
     Active Substance: CARVEDILOL
     Dosage: 20 MG, 1D
  4. NIFEDIPINE [Suspect]
     Active Substance: NIFEDIPINE
     Dosage: 40 MG, 1D
  5. ETIZOLAM [Suspect]
     Active Substance: ETIZOLAM
     Dosage: 0.5 MG, TID
  6. CLONAZEPAM [Suspect]
     Active Substance: CLONAZEPAM
     Dosage: 2 MG, 1D
  7. ETHYL LOFLAZEPATE [Suspect]
     Active Substance: ETHYL LOFLAZEPATE
     Dosage: UNK
  8. FLUNITRAZEPAM [Suspect]
     Active Substance: FLUNITRAZEPAM
     Dosage: 2 MG, 1D
  9. CYSTEINE [Concomitant]
     Active Substance: CYSTEINE
     Dosage: 80 MG, BID
  10. IGURATIMOD [Concomitant]
     Active Substance: IGURATIMOD
     Dosage: 50 MG, 1D
  11. TACROLIMUS [Concomitant]
     Active Substance: TACROLIMUS
     Dosage: 1.5 MG, 1D
  12. FEBUXOSTAT [Concomitant]
     Active Substance: FEBUXOSTAT
     Dosage: 10 MG, 1D
  13. METHOTREXATE [Concomitant]
     Active Substance: METHOTREXATE
     Dosage: 8 MG, 2W
  14. LEVOCARNITINE HYDROCHLORIDE [Concomitant]
     Active Substance: LEVOCARNITINE HYDROCHLORIDE
     Dosage: 300 MG, BID
  15. SERTRALINE HYDROCHLORIDE [Concomitant]
     Active Substance: SERTRALINE HYDROCHLORIDE
     Dosage: 75 MG, 1D
  16. OLANZAPINE [Concomitant]
     Active Substance: OLANZAPINE
     Dosage: 20 MG, 1D
  17. BREXPIPRAZOLE [Concomitant]
     Active Substance: BREXPIPRAZOLE
     Dosage: 1 MG, 1D
  18. FLUTOPRAZEPAM [Concomitant]
     Active Substance: FLUTOPRAZEPAM
     Dosage: 4 MG, 1D
  19. ACETAMINOPHEN [Concomitant]
     Active Substance: ACETAMINOPHEN
     Dosage: 500 MG, BID
  20. IBUPROFEN [Concomitant]
     Active Substance: IBUPROFEN
     Dosage: 200 MG, BID
  21. ORYCTOLAGUS CUNICULUS SKIN [Concomitant]
     Active Substance: ORYCTOLAGUS CUNICULUS SKIN
     Dosage: 16 UNITS, BID
  22. METHYLCOBALAMIN [Concomitant]
     Active Substance: METHYLCOBALAMIN
     Dosage: 500 UG, BID
  23. FOLIC ACID [Concomitant]
     Active Substance: FOLIC ACID
     Dosage: 10 MG, 2W
  24. ASCORBIC ACID;CALCIUM PANTOTHENATE [Concomitant]
     Dosage: ASCORBIC ACID 400 MG; CALCIUM PANTOTHENATE 6 MG, BID
  25. VITAMINS [Concomitant]
     Active Substance: VITAMINS
     Dosage: OCTOTIAMINE 25 MG, CYANOCOBALAMIN 0.25 MG, PYRIDOXINE HYDROCHLORIDE 40 MG, RIBOFLAVIN 2.5 MG, BID
  26. ELDECALCITOL [Concomitant]
     Active Substance: ELDECALCITOL
     Dosage: 0.75 UG, 1D
  27. SULFAMETHOXAZOLE AND TRIMETHOPRIM [Concomitant]
     Active Substance: SULFAMETHOXAZOLE\TRIMETHOPRIM
     Dosage: SULFAMETHOXAZOLE 400 MG, TRIMETHOPRIM 80 MG, 1D
  28. TIZANIDINE HYDROCHLORIDE [Concomitant]
     Active Substance: TIZANIDINE HYDROCHLORIDE
     Dosage: 2 MG, BID
  29. TRANEXAMIC ACID [Concomitant]
     Active Substance: TRANEXAMIC ACID
     Dosage: 500 MG, BID
  30. TRIAMCINOLONE [Concomitant]
     Active Substance: TRIAMCINOLONE
     Dosage: 4 MG, BID
  31. PREGABALIN [Concomitant]
     Active Substance: PREGABALIN
     Dosage: 87.5 MG, BID
  32. PEMAFIBRATE [Concomitant]
     Active Substance: PEMAFIBRATE
     Dosage: 0.1 MG, BID
  33. BERAPROST SODIUM [Concomitant]
     Active Substance: BERAPROST SODIUM
     Dosage: 20 UG, BID
  34. MENATETRENONE [Concomitant]
     Active Substance: MENATETRENONE
     Dosage: 15 MG, BID
  35. LEVOTHYROXINE SODIUM [Concomitant]
     Active Substance: LEVOTHYROXINE SODIUM
     Dosage: 100 UG, 1D
  36. CELECOXIB [Concomitant]
     Active Substance: CELECOXIB
     Dosage: UNK

REACTIONS (19)
  - Rapidly progressive osteoarthritis [Unknown]
  - Joint destruction [Unknown]
  - Unresponsive to stimuli [Unknown]
  - Depressed level of consciousness [Recovered/Resolved]
  - Neuropathy peripheral [Recovered/Resolved]
  - Arthralgia [Recovering/Resolving]
  - Osteoarthritis [Unknown]
  - Hypotension [Unknown]
  - Procedural pain [Unknown]
  - Abdominal discomfort [Unknown]
  - Movement disorder [Unknown]
  - Sedation complication [Recovered/Resolved]
  - Dysarthria [Unknown]
  - Somnolence [Unknown]
  - Pain [Unknown]
  - Constipation [Unknown]
  - Hypoalbuminaemia [Not Recovered/Not Resolved]
  - Hypercalcaemia [Unknown]
  - Treatment noncompliance [Unknown]
